FAERS Safety Report 7135634-7 (Version None)
Quarter: 2010Q4

REPORT INFORMATION
  Report Type: 
  Country: None (occurrence: None)
  Receive Date: 20101203
  Receipt Date: 20101126
  Transmission Date: 20110411
  Serious: Yes (Other)
  Sender: FDA-Public Use
  Company Number: FR-SANOFI-AVENTIS-2010SA072481

PATIENT
  Age: 71 Year
  Sex: Male

DRUGS (2)
  1. PLAVIX [Suspect]
     Indication: AORTIC VALVE REPLACEMENT
     Route: 048
     Dates: start: 20100601, end: 20100709
  2. VITAMIN K TAB [Concomitant]
     Indication: PULMONARY EMBOLISM
     Dates: start: 20091001, end: 20100601

REACTIONS (2)
  - BLAST CELLS PRESENT [None]
  - MYELOCYTOSIS [None]
